FAERS Safety Report 10090191 (Version 2)
Quarter: 2014Q2

REPORT INFORMATION
  Report Type: Spontaneous
  Country: US (occurrence: US)
  Receive Date: 20140421
  Receipt Date: 20140513
  Transmission Date: 20141212
  Serious: Yes (Other)
  Sender: FDA-Public Use
  Company Number: US-GLAXOSMITHKLINE-A1069285A

PATIENT
  Sex: Female

DRUGS (2)
  1. MEKINIST [Suspect]
     Indication: PRODUCT USED FOR UNKNOWN INDICATION
     Route: 048
  2. UNKNOWN [Concomitant]

REACTIONS (4)
  - Stevens-Johnson syndrome [Unknown]
  - Rash generalised [Unknown]
  - Rash [Unknown]
  - Genital rash [Unknown]
